FAERS Safety Report 23478603 (Version 1)
Quarter: 2024Q1

REPORT INFORMATION
  Report Type: Spontaneous
  Country: LT (occurrence: LT)
  Receive Date: 20240205
  Receipt Date: 20240205
  Transmission Date: 20240410
  Serious: No
  Sender: FDA-Public Use
  Company Number: LT-IPSEN Group, Research and Development-2023-26419

PATIENT
  Age: 62 Year
  Sex: Female

DRUGS (1)
  1. CABOMETYX [Suspect]
     Active Substance: CABOZANTINIB S-MALATE
     Indication: Hepatocellular carcinoma
     Dosage: UNK
     Route: 065
     Dates: start: 20220622

REACTIONS (2)
  - Alpha 1 foetoprotein increased [Unknown]
  - Disease progression [Unknown]

NARRATIVE: CASE EVENT DATE: 20221221
